FAERS Safety Report 8616906-3 (Version None)
Quarter: 2012Q3

REPORT INFORMATION
  Report Type: 
  Country: None (occurrence: None)
  Receive Date: 20120823
  Receipt Date: 20120810
  Transmission Date: 20120928
  Serious: Yes (Hospitalization)
  Sender: FDA-Public Use
  Company Number: US-009507513-1208USA005747

PATIENT

DRUGS (1)
  1. ZETIA [Suspect]
     Indication: BLOOD CHOLESTEROL
     Dosage: 10 MG, UNK
     Route: 048
     Dates: start: 20000101

REACTIONS (4)
  - MUSCULAR WEAKNESS [None]
  - DRUG INEFFECTIVE [None]
  - PANCREATITIS [None]
  - PAIN [None]
